FAERS Safety Report 6405926-5 (Version None)
Quarter: 2009Q4

REPORT INFORMATION
  Report Type: 
  Country: None (occurrence: None)
  Receive Date: 20091016
  Receipt Date: 20091016
  Transmission Date: 20100525
  Serious: No
  Sender: FDA-Public Use
  Company Number: None

PATIENT
  Sex: Female

DRUGS (1)
  1. AMITRIPTYLINE HYDROCHLORIDE [Suspect]
     Dosage: 1 DAILY AT NIGHT
     Dates: start: 20090801, end: 20090901

REACTIONS (3)
  - DECREASED APPETITE [None]
  - PALPITATIONS [None]
  - TREMOR [None]
